FAERS Safety Report 17473527 (Version 1)
Quarter: 2020Q1

REPORT INFORMATION
  Report Type: Report from Study
  Country: BR (occurrence: BR)
  Receive Date: 20200228
  Receipt Date: 20200228
  Transmission Date: 20200409
  Serious: Yes (Other)
  Sender: FDA-Public Use
  Company Number: BR-JNJFOC-20190636475

PATIENT
  Sex: Female
  Weight: 54 kg

DRUGS (5)
  1. NEUTROFER [Concomitant]
     Active Substance: FERROUS BISGLYCINATE
  2. GLUCOSAMINE SULFATE [Concomitant]
     Active Substance: GLUCOSAMINE SULFATE
  3. CHONDROITIN [Concomitant]
     Active Substance: CHONDROITIN
  4. STELARA [Suspect]
     Active Substance: USTEKINUMAB
     Indication: PSORIASIS
     Route: 058
  5. OSTEONUTRI [Concomitant]

REACTIONS (5)
  - Abdominal mass [Unknown]
  - Inflammation [Unknown]
  - Anaemia [Recovered/Resolved]
  - Ovarian cyst [Unknown]
  - Infection [Unknown]

NARRATIVE: CASE EVENT DATE: 2018
